FAERS Safety Report 6259830-6 (Version None)
Quarter: 2009Q3

REPORT INFORMATION
  Report Type: 
  Country: None (occurrence: None)
  Receive Date: 20090706
  Receipt Date: 20090706
  Transmission Date: 20100115
  Serious: No
  Sender: FDA-Public Use
  Company Number: None

PATIENT
  Age: 55 Year
  Sex: Male
  Weight: 81.6475 kg

DRUGS (2)
  1. ALLAHIST DM 100 DOESN'T SAY [Suspect]
     Indication: COUGH
     Dosage: 1 TSP EVERY 6 HOURS
     Dates: start: 20090701, end: 20090701
  2. ALLAHIST DM 100 DOESN'T SAY [Suspect]
     Indication: INFLUENZA LIKE ILLNESS
     Dosage: 1 TSP EVERY 6 HOURS
     Dates: start: 20090701, end: 20090701

REACTIONS (2)
  - AGITATION [None]
  - NERVOUSNESS [None]
